FAERS Safety Report 4721367-0 (Version None)
Quarter: 2005Q3

REPORT INFORMATION
  Report Type: 
  Country: None (occurrence: None)
  Receive Date: 20050721
  Receipt Date: 20040723
  Transmission Date: 20060218
  Serious: Yes (Other)
  Sender: FDA-Public Use
  Company Number: US-BRISTOL-MYERS SQUIBB COMPANY-12649752

PATIENT
  Age: 77 Year
  Sex: Male

DRUGS (2)
  1. COUMADIN [Suspect]
     Indication: THROMBOSIS PROPHYLAXIS
     Route: 048
  2. MULTI-VITAMIN [Concomitant]
     Dosage: ADDED RECENTLY TO PATIENT'S REGIMEN

REACTIONS (1)
  - INTERNATIONAL NORMALISED RATIO FLUCTUATION [None]
